FAERS Safety Report 5195737-3 (Version None)
Quarter: 2007Q1

REPORT INFORMATION
  Report Type: 
  Country: None (occurrence: None)
  Receive Date: 20070102
  Receipt Date: 20061226
  Transmission Date: 20070707
  Serious: Yes (Hospitalization)
  Sender: FDA-Public Use
  Company Number: 2006AP05928

PATIENT
  Age: 27671 Day
  Sex: Male
  Weight: 53 kg

DRUGS (13)
  1. IRESSA [Suspect]
     Indication: NON-SMALL CELL LUNG CANCER STAGE IIIB
     Route: 048
     Dates: start: 20060913, end: 20061024
  2. CLEANAL [Concomitant]
     Route: 048
     Dates: start: 20060220
  3. HUSCODE [Concomitant]
     Route: 048
     Dates: start: 20060220
  4. LENDORMIN [Concomitant]
     Route: 048
     Dates: start: 20060221
  5. PACLITAXEL [Concomitant]
     Dosage: 1ST COURSE
     Dates: start: 20060301, end: 20060301
  6. PACLITAXEL [Concomitant]
     Dosage: 2ND COURSE
     Dates: start: 20060401, end: 20060401
  7. PACLITAXEL [Concomitant]
     Dosage: 3RD COURSE
     Dates: start: 20060501, end: 20060501
  8. PACLITAXEL [Concomitant]
     Dosage: 4TH COURSE
     Dates: start: 20060701, end: 20060701
  9. CARBOPLATIN [Concomitant]
     Dosage: 1ST COURSE
     Dates: start: 20060301, end: 20060301
  10. CARBOPLATIN [Concomitant]
     Dosage: 2ND COURSE
     Dates: start: 20060401, end: 20060401
  11. CARBOPLATIN [Concomitant]
     Dosage: 3RD COURSE
     Dates: start: 20060501, end: 20060501
  12. CARBOPLATIN [Concomitant]
     Dosage: 4TH COURSE
     Dates: start: 20060701, end: 20060701
  13. VINORELBINE [Concomitant]
     Dates: start: 20060801, end: 20060801

REACTIONS (3)
  - ALANINE AMINOTRANSFERASE INCREASED [None]
  - ASPARTATE AMINOTRANSFERASE INCREASED [None]
  - LIVER DISORDER [None]
